FAERS Safety Report 6737916-7 (Version None)
Quarter: 2010Q2

REPORT INFORMATION
  Report Type: 
  Country: None (occurrence: None)
  Receive Date: 20100524
  Receipt Date: 20100513
  Transmission Date: 20101027
  Serious: Yes (Hospitalization)
  Sender: FDA-Public Use
  Company Number: US-JNJFOC-20100504649

PATIENT
  Sex: Male
  Weight: 45 kg

DRUGS (4)
  1. REMICADE [Suspect]
     Indication: COLITIS ULCERATIVE
     Route: 042
  2. REMICADE [Suspect]
     Route: 042
  3. METRONIDAZOLE [Concomitant]
  4. ENTOCORT EC [Concomitant]

REACTIONS (1)
  - POUCHITIS [None]
